FAERS Safety Report 15942747 (Version 3)
Quarter: 2020Q1

REPORT INFORMATION
  Report Type: Spontaneous
  Country: US (occurrence: US)
  Receive Date: 20190209
  Receipt Date: 20200311
  Transmission Date: 20200409
  Serious: Yes (Hospitalization, Other)
  Sender: FDA-Public Use
  Company Number: US-ASTRAZENECA-2018SF66183

PATIENT
  Age: 24468 Day
  Sex: Male
  Weight: 85.6 kg

DRUGS (22)
  1. NEXIUM [Suspect]
     Active Substance: ESOMEPRAZOLE MAGNESIUM
     Route: 048
  2. ASPIRIN. [Concomitant]
     Active Substance: ASPIRIN
  3. PROAIR HFA [Concomitant]
     Active Substance: ALBUTEROL SULFATE
  4. AMIODARONE [Concomitant]
     Active Substance: AMIODARONE
     Route: 048
  5. AUGMENTIN [Concomitant]
     Active Substance: AMOXICILLIN\CLAVULANATE POTASSIUM
     Dosage: 875-125 MG ORAL TABLET 1 TABLET , ORAL EVERY 12 H
     Dates: start: 20170802
  6. BENAZEPRIL [Concomitant]
     Active Substance: BENAZEPRIL HYDROCHLORIDE
     Route: 048
     Dates: start: 20170802
  7. VENTOLIN [Concomitant]
     Active Substance: ALBUTEROL SULFATE
  8. FLUTICASONE. [Concomitant]
     Active Substance: FLUTICASONE
  9. LYRICA [Concomitant]
     Active Substance: PREGABALIN
     Route: 048
     Dates: start: 20170802
  10. NEXIUM [Suspect]
     Active Substance: ESOMEPRAZOLE MAGNESIUM
     Route: 048
     Dates: start: 20090826
  11. METOCLOPRAMIDE. [Concomitant]
     Active Substance: METOCLOPRAMIDE
  12. ROPINIROLE. [Concomitant]
     Active Substance: ROPINIROLE
  13. LIPITOR [Concomitant]
     Active Substance: ATORVASTATIN CALCIUM
     Route: 048
     Dates: start: 20170802
  14. ADVAIR HFA [Concomitant]
     Active Substance: FLUTICASONE PROPIONATE\SALMETEROL XINAFOATE
  15. ALENDRONATE [Concomitant]
     Active Substance: ALENDRONATE SODIUM
     Dosage: 70 MG TABLET WEEKLY
     Route: 048
  16. COREG [Concomitant]
     Active Substance: CARVEDILOL
     Route: 048
     Dates: start: 20170802
  17. BENAZEPRIL [Concomitant]
     Active Substance: BENAZEPRIL HYDROCHLORIDE
  18. FENOFIBRATE. [Concomitant]
     Active Substance: FENOFIBRATE
  19. LORATADINE. [Concomitant]
     Active Substance: LORATADINE
  20. BUPROPION. [Concomitant]
     Active Substance: BUPROPION
     Route: 048
     Dates: start: 20170802
  21. MELOXICAM. [Concomitant]
     Active Substance: MELOXICAM
  22. LASIX [Concomitant]
     Active Substance: FUROSEMIDE
     Route: 048
     Dates: start: 20170802

REACTIONS (5)
  - Renal failure [Unknown]
  - Rebound acid hypersecretion [Unknown]
  - Acute kidney injury [Recovered/Resolved]
  - Chronic kidney disease [Unknown]
  - Renal injury [Unknown]

NARRATIVE: CASE EVENT DATE: 20130803
